FAERS Safety Report 17830012 (Version 1)
Quarter: 2020Q2

REPORT INFORMATION
  Report Type: Spontaneous
  Country: CA (occurrence: CA)
  Receive Date: 20200527
  Receipt Date: 20200527
  Transmission Date: 20200714
  Serious: Yes (Death)
  Sender: FDA-Public Use
  Company Number: CA-TEVA-2020-CA-1240176

PATIENT
  Age: 26 Year
  Sex: Female
  Weight: 36 kg

DRUGS (7)
  1. COLACE [Concomitant]
     Active Substance: DOCUSATE SODIUM
  2. CLOBAZAM. [Concomitant]
     Active Substance: CLOBAZAM
  3. NEURONTIN [Concomitant]
     Active Substance: GABAPENTIN
  4. PROPOFOL. [Suspect]
     Active Substance: PROPOFOL
     Indication: PRODUCT USED FOR UNKNOWN INDICATION
     Route: 042
  5. DILANTIN [Concomitant]
     Active Substance: PHENYTOIN
  6. LOSEC [Concomitant]
     Active Substance: OMEPRAZOLE
  7. TOPIRAMATE. [Concomitant]
     Active Substance: TOPIRAMATE

REACTIONS (1)
  - Cardiac disorder [Fatal]
